FAERS Safety Report 9262459 (Version 3)
Quarter: 2013Q2

REPORT INFORMATION
  Report Type: Spontaneous
  Country: US (occurrence: US)
  Receive Date: 20130430
  Receipt Date: 20130621
  Transmission Date: 20140414
  Serious: Yes (Other)
  Sender: FDA-Public Use
  Company Number: US-BAYER-2013-051414

PATIENT
  Age: 25 Year
  Sex: Female

DRUGS (1)
  1. MIRENA [Suspect]
     Indication: CONTRACEPTION
     Dosage: 20 MCG/24HR, CONT
     Route: 015
     Dates: start: 20130215, end: 20130405

REACTIONS (10)
  - Cervical dysplasia [None]
  - Cervical dysplasia [None]
  - Papilloma viral infection [None]
  - Post procedural haemorrhage [None]
  - Vaginitis bacterial [None]
  - Vaginal odour [None]
  - Vaginal haemorrhage [None]
  - Vaginal haemorrhage [None]
  - Unintentional medical device removal [None]
  - Vaginal haemorrhage [Recovered/Resolved]
